FAERS Safety Report 11197688 (Version 1)
Quarter: 2015Q2

REPORT INFORMATION
  Report Type: Spontaneous
  Country: DE (occurrence: DE)
  Receive Date: 20150617
  Receipt Date: 20150617
  Transmission Date: 20150821
  Serious: Yes (Other)
  Sender: FDA-Public Use
  Company Number: DE-ELI_LILLY_AND_COMPANY-DE201505006279

PATIENT
  Age: 55 Year
  Sex: Male

DRUGS (3)
  1. PREDNISONE. [Concomitant]
     Active Substance: PREDNISONE
     Indication: PRODUCT USED FOR UNKNOWN INDICATION
     Dosage: UNK, UNKNOWN
     Route: 065
  2. INSULIN [Concomitant]
     Active Substance: INSULIN NOS
  3. INSULIN LISPRO [Suspect]
     Active Substance: INSULIN LISPRO
     Indication: DIABETES MELLITUS
     Dosage: UNK
     Route: 058

REACTIONS (5)
  - Extrasystoles [Unknown]
  - Somnolence [Recovered/Resolved]
  - Drug hypersensitivity [Unknown]
  - Blood glucose abnormal [Unknown]
  - Fatigue [Recovered/Resolved]
